FAERS Safety Report 4753609-X (Version None)
Quarter: 2005Q3

REPORT INFORMATION
  Report Type: 
  Country: None (occurrence: None)
  Receive Date: 20050826
  Receipt Date: 20041112
  Transmission Date: 20060218
  Serious: No
  Sender: FDA-Public Use
  Company Number: US-GLAXOSMITHKLINE-A0533761A

PATIENT
  Age: 61 Year
  Sex: Male

DRUGS (16)
  1. BECONASE [Suspect]
     Dosage: 4SPR TWICE PER DAY
     Route: 045
  2. FLONASE [Suspect]
     Dosage: 4SPR TWICE PER DAY
     Route: 045
  3. THYROID TAB [Concomitant]
  4. VERAPAMIL [Concomitant]
  5. PRINIVIL [Concomitant]
  6. FENESIN [Concomitant]
  7. PROTONIX [Concomitant]
  8. CHLOR-TRIMETON [Concomitant]
  9. SUDAFED 12 HOUR [Concomitant]
  10. ACETAMINOPHEN [Concomitant]
  11. RELAFEN [Concomitant]
  12. VITAMINS [Concomitant]
  13. TUMERIC [Concomitant]
  14. HERBAL REMEDIES [Concomitant]
  15. SALINE NASAL SPRAY [Concomitant]
  16. MENTHOL [Concomitant]
     Route: 045

REACTIONS (3)
  - DRUG INEFFECTIVE [None]
  - SINUS CONGESTION [None]
  - SINUSITIS [None]
